FAERS Safety Report 10095897 (Version 2)
Quarter: 2014Q2

REPORT INFORMATION
  Report Type: Spontaneous
  Country: JP (occurrence: JP)
  Receive Date: 20140422
  Receipt Date: 20140422
  Transmission Date: 20141212
  Serious: Yes (Death, Hospitalization)
  Sender: FDA-Public Use
  Company Number: JP-AMGEN-JPNSP2014018173

PATIENT
  Age: 85 Year
  Sex: Male
  Weight: 163 kg

DRUGS (15)
  1. RANMARK [Suspect]
     Indication: MALIGNANT NEOPLASM OF UNKNOWN PRIMARY SITE
     Dosage: 120 MG, UNK
     Route: 065
     Dates: start: 20130116
  2. ALDACTONE A [Concomitant]
     Indication: HYPERTENSION
     Dosage: 25 MG, QD
     Route: 048
  3. CAPTORIL [Concomitant]
     Indication: HYPERTENSION
     Dosage: 125 MG, QD
     Route: 048
  4. TENORMIN [Concomitant]
     Indication: HYPERTENSION
     Dosage: 25 MG, BID
     Route: 048
  5. TENORMIN [Concomitant]
     Indication: ATRIAL FIBRILLATION
  6. FUROSEMIDE [Concomitant]
     Indication: HYPERTENSION
     Dosage: 40 MG, QD
     Route: 048
  7. OLMETEC [Concomitant]
     Indication: HYPERTENSION
     Dosage: 20 MG, QD
     Route: 048
  8. ALLOPURINOL [Concomitant]
     Indication: HYPERURICAEMIA
     Dosage: 100 MG, QD
     Route: 048
  9. CARDENALIN [Concomitant]
     Indication: HYPERTENSION
     Dosage: 1 MG, QD
     Route: 048
  10. MOBIC [Concomitant]
     Indication: MALIGNANT NEOPLASM OF UNKNOWN PRIMARY SITE
     Dosage: 10 MG, QD
     Route: 048
  11. MOBIC [Concomitant]
     Indication: METASTASES TO BONE
  12. ALFAROL [Concomitant]
     Indication: MALIGNANT NEOPLASM OF UNKNOWN PRIMARY SITE
     Dosage: 1 MUG, QD
     Route: 048
     Dates: start: 20130116
  13. ALFAROL [Concomitant]
     Indication: METASTASES TO BONE
  14. CALCIUM LACTATE US [Concomitant]
     Indication: MALIGNANT NEOPLASM OF UNKNOWN PRIMARY SITE
     Dosage: 1 G, TID
     Route: 048
     Dates: start: 20130116
  15. CALCIUM LACTATE US [Concomitant]
     Indication: METASTASES TO BONE

REACTIONS (2)
  - Hypocalcaemia [Recovered/Resolved]
  - Multi-organ failure [Fatal]
